FAERS Safety Report 16766358 (Version 3)
Quarter: 2019Q4

REPORT INFORMATION
  Report Type: Spontaneous
  Country: None (occurrence: ZM)
  Receive Date: 20190903
  Receipt Date: 20191106
  Transmission Date: 20200122
  Serious: Yes (Other)
  Sender: FDA-Public Use
  Company Number: ZM-POPULATION COUNCIL, INC.-2073930

PATIENT
  Age: 35 Year
  Sex: Female
  Weight: 54 kg

DRUGS (1)
  1. JADELLE [Suspect]
     Active Substance: LEVONORGESTREL
     Indication: CONTRACEPTION
     Route: 059
     Dates: start: 20171024, end: 20190816

REACTIONS (2)
  - Drug interaction [None]
  - Pregnancy with implant contraceptive [None]

NARRATIVE: CASE EVENT DATE: 20190816
